FAERS Safety Report 8757445 (Version 1)
Quarter: 2012Q4

REPORT INFORMATION
  Report Type: 
  Country: US (occurrence: US)
  Receive Date: 20120828
  Receipt Date: 20120828
  Transmission Date: 20130627
  Serious: No
  Sender: FDA-Public Use
  Company Number: US-PFIZER INC-2012206912

PATIENT
  Age: 72 Year
  Sex: Female
  Weight: 79.82 kg

DRUGS (10)
  1. LYRICA [Suspect]
     Indication: BACK PAIN
     Dosage: 50 mg, 3x/day
  2. LYRICA [Suspect]
     Indication: PAIN IN EXTREMITY
     Dosage: 50 mg, Daily
     Dates: start: 2012
  3. PROTONIX [Concomitant]
     Dosage: UNK
  4. LIPITOR [Concomitant]
     Dosage: UNK
  5. PREMARIN [Concomitant]
     Dosage: UNK
  6. TRICOR [Concomitant]
     Dosage: UNK
  7. SAVELLA [Concomitant]
     Dosage: UNK
  8. EFFEXOR [Concomitant]
     Dosage: UNK
  9. HYDROCODONE [Concomitant]
     Indication: PAIN
     Dosage: UNK
  10. CELEBREX [Concomitant]
     Dosage: UNK

REACTIONS (5)
  - Incorrect dose administered [Unknown]
  - Impaired work ability [Unknown]
  - Nausea [Unknown]
  - Feeling abnormal [Unknown]
  - Dizziness [Unknown]
